FAERS Safety Report 11572352 (Version 1)
Quarter: 2015Q3

REPORT INFORMATION
  Report Type: Spontaneous
  Country: US (occurrence: US)
  Receive Date: 20150916
  Receipt Date: 20150916
  Transmission Date: 20151125
  Serious: No
  Sender: FDA-Public Use
  Company Number: US-ELI_LILLY_AND_COMPANY-US200910002951

PATIENT
  Age: 77 Year
  Sex: Male

DRUGS (7)
  1. FORTEO [Suspect]
     Active Substance: TERIPARATIDE
     Dosage: UNK, UNK
     Dates: start: 200907
  2. DIOVAN [Concomitant]
     Active Substance: VALSARTAN
  3. WARFARIN [Concomitant]
     Active Substance: WARFARIN
  4. CALCIUM [Concomitant]
     Active Substance: CALCIUM
  5. METHOTREXATE [Concomitant]
     Active Substance: METHOTREXATE
     Dosage: 23.5 MG, WEEKLY (1/W)
  6. PREDNISONE. [Concomitant]
     Active Substance: PREDNISONE
     Dosage: 4 MG, DAILY (1/D)
  7. COREG [Concomitant]
     Active Substance: CARVEDILOL

REACTIONS (5)
  - Eye haemorrhage [Recovering/Resolving]
  - Eye pain [Recovering/Resolving]
  - Visual impairment [Recovering/Resolving]
  - Eye contusion [Recovering/Resolving]
  - Ocular hyperaemia [Recovering/Resolving]

NARRATIVE: CASE EVENT DATE: 20090919
